FAERS Safety Report 9131194 (Version 3)
Quarter: 2013Q1

REPORT INFORMATION
  Report Type: Spontaneous
  Country: AU (occurrence: AU)
  Receive Date: 20130301
  Receipt Date: 20130315
  Transmission Date: 20140127
  Serious: Yes (Death, Other)
  Sender: FDA-Public Use
  Company Number: PHHY2013AU020344

PATIENT
  Sex: Female

DRUGS (5)
  1. ACLASTA [Suspect]
     Dosage: 5 MG, UNK
     Route: 042
     Dates: start: 20100330
  2. ACLASTA [Suspect]
     Dosage: 5 MG, UNK
     Route: 042
     Dates: start: 20110330
  3. ACLASTA [Suspect]
     Dosage: 5 MG, UNK
     Route: 042
     Dates: start: 20120301
  4. NATRILIX [Concomitant]
     Dosage: 1.5 MG, QD
     Route: 048
     Dates: start: 2008
  5. HIPREX [Concomitant]
     Dosage: 1 MG, BID
     Route: 048

REACTIONS (6)
  - Death [Fatal]
  - Dementia [Fatal]
  - Sepsis [Fatal]
  - Decubitus ulcer [Unknown]
  - Infection [Unknown]
  - Urinary tract infection [Unknown]
